FAERS Safety Report 13593243 (Version 1)
Quarter: 2017Q2

REPORT INFORMATION
  Report Type: Spontaneous
  Country: ES (occurrence: ES)
  Receive Date: 20170530
  Receipt Date: 20170530
  Transmission Date: 20170830
  Serious: Yes (Other)
  Sender: FDA-Public Use
  Company Number: ES-BAYER-2017-094984

PATIENT
  Age: 62 Year
  Sex: Male
  Weight: 78 kg

DRUGS (6)
  1. ORFIDAL [Concomitant]
     Active Substance: LORAZEPAM
     Indication: SLEEP DISORDER
     Dosage: 1 MG, QD
     Route: 048
  2. EZETIMIBE. [Suspect]
     Active Substance: EZETIMIBE
     Indication: ISCHAEMIC HEART DISEASE PROPHYLAXIS
  3. BRILIQUE [Suspect]
     Active Substance: TICAGRELOR
     Indication: ISCHAEMIC HEART DISEASE PROPHYLAXIS
     Dosage: 90 MG, BID
     Route: 048
     Dates: start: 20160908, end: 20170510
  4. EMCONCOR COR [Suspect]
     Active Substance: BISOPROLOL
     Indication: ISCHAEMIC HEART DISEASE PROPHYLAXIS
     Dosage: 2.5 MG, QD
     Route: 048
     Dates: start: 20160908, end: 20170510
  5. ATORVASTATIN CALCIUM. [Suspect]
     Active Substance: ATORVASTATIN CALCIUM
     Indication: ISCHAEMIC HEART DISEASE PROPHYLAXIS
     Dosage: 1 DF, QD
     Route: 048
     Dates: start: 20160908, end: 20170510
  6. ADIRO 100 MG [Suspect]
     Active Substance: ASPIRIN
     Indication: ISCHAEMIC HEART DISEASE PROPHYLAXIS
     Dosage: 100 MG, QD
     Route: 048
     Dates: start: 20160908

REACTIONS (6)
  - Fatigue [Recovering/Resolving]
  - Haematoma [Recovering/Resolving]
  - Choking sensation [Recovering/Resolving]
  - Contusion [None]
  - Gynaecomastia [Recovering/Resolving]
  - Arthralgia [Recovering/Resolving]

NARRATIVE: CASE EVENT DATE: 20170117
